FAERS Safety Report 21344598 (Version 1)
Quarter: 2022Q3

REPORT INFORMATION
  Report Type: Spontaneous
  Country: US (occurrence: US)
  Receive Date: 20220916
  Receipt Date: 20220916
  Transmission Date: 20221027
  Serious: No
  Sender: FDA-Public Use
  Company Number: US-NOVEN PHARMACEUTICALS, INC.-2022-NOV-US000230

PATIENT
  Age: 51 Year
  Sex: Female
  Weight: 59.864 kg

DRUGS (2)
  1. COMBIPATCH [Suspect]
     Active Substance: ESTRADIOL\NORETHINDRONE ACETATE
     Indication: Menopausal symptoms
     Dosage: UNK, 1 PATCH EVERY 3-4 DAYS
     Route: 062
     Dates: start: 20211005, end: 202203
  2. SYNTHROID [Concomitant]
     Active Substance: LEVOTHYROXINE SODIUM
     Indication: Product used for unknown indication
     Dosage: 88 UG, DAILY
     Route: 048

REACTIONS (5)
  - Application site scab [Recovering/Resolving]
  - Application site vesicles [Recovered/Resolved]
  - Application site irritation [Recovering/Resolving]
  - Application site discolouration [Recovered/Resolved]
  - Application site inflammation [Recovered/Resolved]

NARRATIVE: CASE EVENT DATE: 20211001
